FAERS Safety Report 11233369 (Version 1)
Quarter: 2015Q3

REPORT INFORMATION
  Report Type: Report from Study
  Country: ES (occurrence: ES)
  Receive Date: 20150702
  Receipt Date: 20150702
  Transmission Date: 20151125
  Serious: Yes (Death, Other)
  Sender: FDA-Public Use
  Company Number: ES-ROCHE-1599613

PATIENT

DRUGS (1)
  1. ALTEPLASE [Suspect]
     Active Substance: ALTEPLASE
     Indication: ISCHAEMIC STROKE
     Route: 042

REACTIONS (28)
  - Subarachnoid haemorrhage [Unknown]
  - Haematoma [Unknown]
  - Respiratory failure [Unknown]
  - Upper gastrointestinal haemorrhage [Unknown]
  - Thyroid neoplasm [Unknown]
  - Nervous system disorder [Unknown]
  - Brain oedema [Unknown]
  - Cardiac failure [Unknown]
  - Renal cancer [Unknown]
  - Haemorrhage intracranial [Unknown]
  - Acute myocardial infarction [Unknown]
  - Pulmonary embolism [Unknown]
  - Metastasis [Unknown]
  - Cerebrovascular accident [Unknown]
  - Vascular pseudoaneurysm [Unknown]
  - Spinal column injury [Unknown]
  - Respiratory arrest [Unknown]
  - Blindness [Unknown]
  - Breast cancer [Unknown]
  - Septic shock [Unknown]
  - Ventricular fibrillation [Unknown]
  - Neoplasm malignant [Unknown]
  - Myelodysplastic syndrome [Unknown]
  - Craniocerebral injury [Unknown]
  - Death [Fatal]
  - Rectal cancer [Unknown]
  - Cardiac arrest [Unknown]
  - Metastatic neoplasm [Unknown]
